FAERS Safety Report 7250189-4 (Version None)
Quarter: 2011Q1

REPORT INFORMATION
  Report Type: 
  Country: None (occurrence: None)
  Receive Date: 20110128
  Receipt Date: 20110114
  Transmission Date: 20110831
  Serious: Yes (Hospitalization, Other)
  Sender: FDA-Public Use
  Company Number: US-BAYER-2011-005066

PATIENT

DRUGS (1)
  1. AVELOX [Suspect]
     Dosage: 400 MG, UNK
     Route: 042
     Dates: start: 20110114

REACTIONS (5)
  - SWELLING [None]
  - HYPERSENSITIVITY [None]
  - INFLAMMATION [None]
  - INFUSION SITE EXTRAVASATION [None]
  - ERYTHEMA [None]
